FAERS Safety Report 10719628 (Version 2)
Quarter: 2015Q1

REPORT INFORMATION
  Report Type: Spontaneous
  Country: US (occurrence: US)
  Receive Date: 20150119
  Receipt Date: 20150119
  Transmission Date: 20150721
  Serious: No
  Sender: FDA-Public Use
  Company Number: US-UNITED THERAPEUTICS-UNT-2014-010811

PATIENT
  Sex: Male
  Weight: 7.26 kg

DRUGS (2)
  1. TRACLEER [Concomitant]
     Active Substance: BOSENTAN\BOSENTAN MONOHYDRATE
     Indication: PRODUCT USED FOR UNKNOWN INDICATION
  2. REMODULIN [Suspect]
     Active Substance: TREPROSTINIL
     Indication: PULMONARY HYPERTENSION
     Dosage: 0.009 ?G/KG/MIN, CONTINUING
     Route: 058
     Dates: start: 20141021

REACTIONS (7)
  - Device occlusion [Unknown]
  - Agitation [Unknown]
  - Irritability [Unknown]
  - Vomiting [Unknown]
  - Oxygen saturation decreased [Not Recovered/Not Resolved]
  - Drug dose omission [Unknown]
  - Tremor [Unknown]

NARRATIVE: CASE EVENT DATE: 2014
